FAERS Safety Report 15211881 (Version 2)
Quarter: 2018Q3

REPORT INFORMATION
  Report Type: Spontaneous
  Country: PL (occurrence: PL)
  Receive Date: 20180729
  Receipt Date: 20180813
  Transmission Date: 20181010
  Serious: Yes (Other)
  Sender: FDA-Public Use
  Company Number: PHHY2018PL056925

PATIENT
  Age: 62 Year
  Sex: Female

DRUGS (3)
  1. ANASTROZOLE. [Suspect]
     Active Substance: ANASTROZOLE
     Indication: PRODUCT USED FOR UNKNOWN INDICATION
     Dosage: 1 MG, QD (1 MG DAILY NON?AZ DRUG)
     Route: 048
     Dates: start: 200909, end: 201308
  2. FASLODEX [Suspect]
     Active Substance: FULVESTRANT
     Indication: PRODUCT USED FOR UNKNOWN INDICATION
     Dosage: 500 MG, QMO
     Route: 030
     Dates: end: 201604
  3. TAMOXIFEN [Suspect]
     Active Substance: TAMOXIFEN
     Indication: PRODUCT USED FOR UNKNOWN INDICATION
     Dosage: 20 MG, QD (20 MG DAILY NON?AZ DRUG)
     Route: 048

REACTIONS (5)
  - Malignant neoplasm progression [Unknown]
  - Peripheral vascular disorder [Unknown]
  - Asthenia [Unknown]
  - Diarrhoea [Unknown]
  - Skin disorder [Unknown]

NARRATIVE: CASE EVENT DATE: 201308
